FAERS Safety Report 7033053-5 (Version None)
Quarter: 2010Q4

REPORT INFORMATION
  Report Type: 
  Country: None (occurrence: None)
  Receive Date: 20101007
  Receipt Date: 20100927
  Transmission Date: 20110411
  Serious: Yes (Other)
  Sender: FDA-Public Use
  Company Number: JP-PFIZER INC-2010122518

PATIENT
  Sex: Female

DRUGS (2)
  1. CHAMPIX [Suspect]
     Dosage: 0.5 MG, 1X/DAY
     Route: 048
     Dates: start: 20100918
  2. CHAMPIX [Suspect]
     Dosage: 1 MG/DAY
     Route: 048
     Dates: start: 20100925

REACTIONS (3)
  - DIARRHOEA [None]
  - OROPHARYNGEAL PAIN [None]
  - OROPHARYNGEAL SWELLING [None]
